APPROVED DRUG PRODUCT: SOTALOL HYDROCHLORIDE
Active Ingredient: SOTALOL HYDROCHLORIDE
Strength: 80MG
Dosage Form/Route: TABLET;ORAL
Application: A076214 | Product #001 | TE Code: AB
Applicant: APOTEX INC
Approved: Aug 27, 2003 | RLD: No | RS: No | Type: RX